FAERS Safety Report 10248520 (Version 3)
Quarter: 2014Q3

REPORT INFORMATION
  Report Type: Spontaneous
  Country: GB (occurrence: GB)
  Receive Date: 20140620
  Receipt Date: 20140730
  Transmission Date: 20150326
  Serious: Yes (Hospitalization)
  Sender: FDA-Public Use
  Company Number: GB-ABBVIE-14P-167-1249622-00

PATIENT
  Age: 81 Year
  Sex: Male

DRUGS (4)
  1. TESTOGEL [Suspect]
     Active Substance: TESTOSTERONE
     Indication: PRODUCT USED FOR UNKNOWN INDICATION
     Dosage: ONE SACHET APPLIED TO SKIN DAILY
  2. RIVAROXABAN [Suspect]
     Active Substance: RIVAROXABAN
     Indication: ANTICOAGULANT THERAPY
     Route: 048
  3. VERAPAMIL [Concomitant]
     Active Substance: VERAPAMIL HYDROCHLORIDE
     Indication: HYPERTENSION
     Route: 048
  4. TOLTERODINE [Concomitant]
     Active Substance: TOLTERODINE
     Indication: BENIGN PROSTATIC HYPERPLASIA
     Route: 048

REACTIONS (1)
  - Cerebrovascular accident [Recovering/Resolving]

NARRATIVE: CASE EVENT DATE: 201405
